FAERS Safety Report 8807597 (Version 1)
Quarter: 2012Q4

REPORT INFORMATION
  Report Type: 
  Country: US (occurrence: US)
  Receive Date: 20120925
  Receipt Date: 20120925
  Transmission Date: 20130627
  Serious: Yes (Other)
  Sender: FDA-Public Use
  Company Number: US-JNJFOC-20120907311

PATIENT
  Sex: Female

DRUGS (3)
  1. BENADRYL [Suspect]
     Indication: PREMEDICATION
     Route: 065
  2. TYLENOL [Suspect]
     Route: 065
  3. TYLENOL [Suspect]
     Indication: PREMEDICATION
     Route: 065

REACTIONS (6)
  - Muscle spasms [Unknown]
  - Rash [Unknown]
  - Vomiting [Unknown]
  - Back pain [Unknown]
  - Off label use [Unknown]
  - Infusion related reaction [None]
